FAERS Safety Report 21787583 (Version 2)
Quarter: 2023Q1

REPORT INFORMATION
  Report Type: Spontaneous
  Country: US (occurrence: US)
  Receive Date: 20221228
  Receipt Date: 20230201
  Transmission Date: 20230418
  Serious: Yes (Hospitalization)
  Sender: FDA-Public Use
  Company Number: US-BRISTOL-MYERS SQUIBB COMPANY-2022-159728

PATIENT
  Age: 59 Year
  Sex: Female
  Weight: 80.29 kg

DRUGS (1)
  1. REVLIMID [Suspect]
     Active Substance: LENALIDOMIDE
     Indication: Non-Hodgkin^s lymphoma
     Dosage: DAILY FOR 21DAYS
     Route: 048

REACTIONS (6)
  - Dizziness [Unknown]
  - Oedema peripheral [Recovering/Resolving]
  - Cough [Unknown]
  - Alopecia [Unknown]
  - Blood potassium decreased [Unknown]
  - Blood calcium increased [Unknown]

NARRATIVE: CASE EVENT DATE: 20221101
